FAERS Safety Report 8128661-4 (Version None)
Quarter: 2012Q1

REPORT INFORMATION
  Report Type: 
  Country: None (occurrence: None)
  Receive Date: 20120210
  Receipt Date: 20111220
  Transmission Date: 20120608
  Serious: No
  Sender: FDA-Public Use
  Company Number: US-BRISTOL-MYERS SQUIBB COMPANY-16309759

PATIENT
  Sex: Female

DRUGS (1)
  1. ORENCIA [Suspect]
     Dosage: NO OF INFUSIONS RECEIVED: 3.

REACTIONS (6)
  - ABDOMINAL PAIN UPPER [None]
  - PAIN [None]
  - DIARRHOEA [None]
  - VOMITING [None]
  - MALAISE [None]
  - FATIGUE [None]
